FAERS Safety Report 7439724-0 (Version None)
Quarter: 2011Q2

REPORT INFORMATION
  Report Type: 
  Country: None (occurrence: None)
  Receive Date: 20110427
  Receipt Date: 20101101
  Transmission Date: 20111010
  Serious: No
  Sender: FDA-Public Use
  Company Number: US-MYLANLABS-2010S1020186

PATIENT
  Age: 35 Year
  Sex: Male

DRUGS (2)
  1. METHIMAZOLE [Suspect]
     Indication: HYPERTHYROIDISM
     Route: 048
     Dates: start: 20100801
  2. OMEPRAZOLE [Concomitant]

REACTIONS (2)
  - THYROID FUNCTION TEST ABNORMAL [None]
  - RASH ERYTHEMATOUS [None]
